FAERS Safety Report 20905617 (Version 3)
Quarter: 2022Q3

REPORT INFORMATION
  Report Type: Spontaneous
  Country: US (occurrence: US)
  Receive Date: 20220602
  Receipt Date: 20220708
  Transmission Date: 20221027
  Serious: No
  Sender: FDA-Public Use
  Company Number: US-TOLMAR, INC.-22US034704

PATIENT
  Sex: Female

DRUGS (2)
  1. FENSOLVI [Suspect]
     Active Substance: LEUPROLIDE ACETATE
     Indication: Product used for unknown indication
     Dosage: 45 MILLIGRAM
     Dates: start: 202110
  2. FENSOLVI [Suspect]
     Active Substance: LEUPROLIDE ACETATE
     Dosage: 45 MILLIGRAM
     Dates: start: 202203

REACTIONS (3)
  - Headache [Not Recovered/Not Resolved]
  - Oestradiol increased [Not Recovered/Not Resolved]
  - Blood luteinising hormone abnormal [Not Recovered/Not Resolved]

NARRATIVE: CASE EVENT DATE: 20220501
